FAERS Safety Report 17032910 (Version 1)
Quarter: 2019Q4

REPORT INFORMATION
  Report Type: Spontaneous
  Country: US (occurrence: US)
  Receive Date: 20191114
  Receipt Date: 20191114
  Transmission Date: 20200122
  Serious: No
  Sender: FDA-Public Use
  Company Number: US-TEVA-2019-US-1135885

PATIENT
  Sex: Female

DRUGS (1)
  1. BUPRENORPHINE TRANSDERMAL PATCH [Suspect]
     Active Substance: BUPRENORPHINE
     Dosage: FORM STRENGTH: 10 MCG/HR
     Route: 062

REACTIONS (7)
  - Product packaging issue [Unknown]
  - Heart rate increased [Unknown]
  - Application site erythema [Unknown]
  - Respiratory rate increased [Unknown]
  - Overdose [Unknown]
  - Application site wound [Unknown]
  - Application site pruritus [Unknown]
